FAERS Safety Report 18057990 (Version 2)
Quarter: 2020Q3

REPORT INFORMATION
  Report Type: Spontaneous
  Country: IT (occurrence: IT)
  Receive Date: 20200723
  Receipt Date: 20200817
  Transmission Date: 20201103
  Serious: Yes (Other)
  Sender: FDA-Public Use
  Company Number: IT-AUROBINDO-AUR-APL-2020-035935

PATIENT
  Age: 40 Year
  Sex: Female

DRUGS (6)
  1. BUPROPIONE [Suspect]
     Active Substance: BUPROPION HYDROCHLORIDE
     Indication: BIPOLAR II DISORDER
     Dosage: 150 MILLIGRAM, ONCE A DAY
     Route: 065
  2. LITHIUM. [Concomitant]
     Active Substance: LITHIUM
     Indication: BIPOLAR II DISORDER
     Dosage: 600 MILLIGRAM, ONCE A DAY
     Route: 065
  3. ARIPIPRAZOLE. [Suspect]
     Active Substance: ARIPIPRAZOLE
     Indication: BIPOLAR DISORDER
     Dosage: 7.5 MILLIGRAM, ONCE A DAY
     Route: 065
  4. LITHIUM. [Concomitant]
     Active Substance: LITHIUM
     Dosage: 900 MILLIGRAM, ONCE A DAY
     Route: 065
  5. VENLAFAXINE [Suspect]
     Active Substance: VENLAFAXINE HYDROCHLORIDE
     Indication: BIPOLAR II DISORDER
     Dosage: 150 MILLIGRAM, ONCE A DAY
     Route: 065
  6. LEVOTHYROXINE. [Concomitant]
     Active Substance: LEVOTHYROXINE
     Indication: HYPOTHYROIDISM
     Dosage: 75 MICROGRAM, DAILY
     Route: 065

REACTIONS (6)
  - Mood altered [Recovered/Resolved]
  - Euphoric mood [Recovered/Resolved]
  - Insomnia [Recovered/Resolved]
  - Hypomania [Recovered/Resolved]
  - Tachyphrenia [Recovered/Resolved]
  - Product use in unapproved indication [Unknown]
